FAERS Safety Report 18319025 (Version 3)
Quarter: 2020Q4

REPORT INFORMATION
  Report Type: Report from Study
  Country: None (occurrence: US)
  Receive Date: 20200928
  Receipt Date: 20201106
  Transmission Date: 20210113
  Serious: Yes (Other)
  Sender: FDA-Public Use
  Company Number: US-ABBVIE-20K-163-3525463-00

PATIENT
  Sex: Female

DRUGS (1)
  1. HUMIRA [Suspect]
     Active Substance: ADALIMUMAB
     Indication: ANKYLOSING SPONDYLITIS
     Dosage: CITRATE FREE
     Route: 058
     Dates: end: 20201003

REACTIONS (5)
  - Pruritus [Recovering/Resolving]
  - Neuralgia [Recovering/Resolving]
  - Cyst [Recovering/Resolving]
  - Carpal tunnel syndrome [Recovering/Resolving]
  - Peripheral swelling [Recovering/Resolving]
